FAERS Safety Report 22080039 (Version 1)
Quarter: 2023Q1

REPORT INFORMATION
  Report Type: Spontaneous
  Country: US (occurrence: None)
  Receive Date: 20230308
  Receipt Date: 20230308
  Transmission Date: 20230418
  Serious: No
  Sender: FDA-Public Use
  Company Number: None

PATIENT
  Age: 56 Year
  Sex: Male

DRUGS (1)
  1. HUMIRA [Suspect]
     Active Substance: ADALIMUMAB
     Indication: Psoriasis
     Dosage: FREQUENCY : EVERY OTHER WEEK;?
     Route: 058
     Dates: start: 20230124

REACTIONS (6)
  - Incorrect dose administered by device [None]
  - Injury associated with device [None]
  - Device leakage [None]
  - Device malfunction [None]
  - Pain in extremity [None]
  - Haemorrhage [None]

NARRATIVE: CASE EVENT DATE: 20230308
